FAERS Safety Report 6498163-X (Version None)
Quarter: 2009Q4

REPORT INFORMATION
  Report Type: 
  Country: None (occurrence: None)
  Receive Date: 20091215
  Receipt Date: 20091207
  Transmission Date: 20100525
  Serious: Yes (Hospitalization)
  Sender: FDA-Public Use
  Company Number: B0614997A

PATIENT
  Sex: Male

DRUGS (1)
  1. ALLI [Suspect]
     Dosage: 2CAP PER DAY
     Dates: start: 20090501, end: 20090720

REACTIONS (4)
  - ABDOMINAL PAIN LOWER [None]
  - ASCITES [None]
  - DIVERTICULUM INTESTINAL [None]
  - SIGMOIDITIS [None]
